FAERS Safety Report 7124472-7 (Version None)
Quarter: 2010Q4

REPORT INFORMATION
  Report Type: 
  Country: None (occurrence: None)
  Receive Date: 20101127
  Receipt Date: 20101122
  Transmission Date: 20110411
  Serious: Yes (Death, Other)
  Sender: FDA-Public Use
  Company Number: US-ROXANE LABORATORIES, INC.-2010-RO-01179RO

PATIENT
  Age: 84 Year
  Sex: Female

DRUGS (5)
  1. MORPHINE [Suspect]
     Indication: HOSPICE CARE
     Route: 048
     Dates: start: 20100821
  2. MORPHINE [Suspect]
     Indication: PAIN
  3. LORAZEPAM [Concomitant]
  4. FENTANYL [Concomitant]
  5. ULTRACET [Concomitant]

REACTIONS (3)
  - DEATH [None]
  - DRUG EFFECT DECREASED [None]
  - PRODUCT TAMPERING [None]
